FAERS Safety Report 7985512-6 (Version None)
Quarter: 2011Q4

REPORT INFORMATION
  Report Type: 
  Country: None (occurrence: None)
  Receive Date: 20111216
  Receipt Date: 20111206
  Transmission Date: 20120403
  Serious: Yes (Death)
  Sender: FDA-Public Use
  Company Number: US-AMGEN-USASP2011050042

PATIENT
  Age: 95 Year
  Sex: Female

DRUGS (5)
  1. CORTICOSTEROIDS [Concomitant]
  2. NPLATE [Suspect]
     Dosage: UNK
     Dates: start: 20110505
  3. NPLATE [Suspect]
     Indication: IDIOPATHIC THROMBOCYTOPENIC PURPURA
     Dosage: 2 MUG/KG, UNK
     Dates: start: 20110512, end: 20111130
  4. NPLATE [Suspect]
     Dosage: UNK
     Dates: start: 20110415, end: 20110512
  5. AZATHIOPRINE [Concomitant]

REACTIONS (4)
  - PNEUMONIA [None]
  - THROMBOCYTOPENIA [None]
  - MYOCARDIAL INFARCTION [None]
  - LIVER FUNCTION TEST ABNORMAL [None]
